FAERS Safety Report 8000425-1 (Version None)
Quarter: 2011Q4

REPORT INFORMATION
  Report Type: 
  Country: None (occurrence: None)
  Receive Date: 20111222
  Receipt Date: 20110314
  Transmission Date: 20120403
  Serious: No
  Sender: FDA-Public Use
  Company Number: US-BRISTOL-MYERS SQUIBB COMPANY-15605330

PATIENT
  Sex: Male

DRUGS (1)
  1. PRAVACHOL [Suspect]
     Dosage: INT AND RESTARTED
     Dates: start: 20110101

REACTIONS (2)
  - POLLAKIURIA [None]
  - TINNITUS [None]
